FAERS Safety Report 8760839 (Version 1)
Quarter: 2012Q4

REPORT INFORMATION
  Report Type: 
  Country: US (occurrence: US)
  Receive Date: 20120829
  Receipt Date: 20120829
  Transmission Date: 20130627
  Serious: Yes (Hospitalization, Other)
  Sender: FDA-Public Use
  Company Number: US-BAYER-2012-089155

PATIENT
  Age: 42 Year
  Sex: Female

DRUGS (5)
  1. BETASERON [Suspect]
     Indication: MULTIPLE SCLEROSIS
     Dosage: 6 miu, QOD
     Route: 058
     Dates: start: 20120723
  2. TYLENOL #3 [Concomitant]
  3. PERCOCET [Concomitant]
  4. AMBIEN [Concomitant]
  5. XANAX [Concomitant]

REACTIONS (9)
  - Blood glucose decreased [None]
  - Unresponsive to stimuli [Recovered/Resolved]
  - Unresponsive to stimuli [None]
  - Respiratory disorder [Recovered/Resolved]
  - Decreased appetite [None]
  - Gait disturbance [None]
  - Fatigue [None]
  - Fall [None]
  - Injection site pain [None]
